FAERS Safety Report 7729255-2 (Version None)
Quarter: 2011Q3

REPORT INFORMATION
  Report Type: 
  Country: None (occurrence: None)
  Receive Date: 20110906
  Receipt Date: 20110901
  Transmission Date: 20111222
  Serious: No
  Sender: FDA-Public Use
  Company Number: US-PFIZER INC-2011205187

PATIENT
  Sex: Male
  Weight: 111 kg

DRUGS (6)
  1. WARFARIN [Concomitant]
     Indication: ANTICOAGULANT THERAPY
     Dosage: 2.5 MG, ONCE DAILY
  2. ASPIRIN [Concomitant]
     Dosage: 81MG, UNK
  3. LISINOPRIL [Concomitant]
     Indication: CARDIAC DISORDER
     Dosage: 2.5 MG, 2X/DAY
  4. LIPITOR [Suspect]
     Indication: MYOCARDIAL INFARCTION
     Dosage: 80 MG(ONE TABLET) DAILY AT NIGHT
     Route: 048
     Dates: start: 20110101, end: 20110828
  5. CARVEDILOL [Concomitant]
     Indication: CARDIAC DISORDER
     Dosage: 6.25 MG, EVERY 12 HOURS
     Route: 048
  6. RANOLAZINE [Concomitant]
     Dosage: 1000 MG, EVERY 12 HOURS

REACTIONS (1)
  - MYALGIA [None]
